FAERS Safety Report 12175440 (Version 1)
Quarter: 2016Q1

REPORT INFORMATION
  Report Type: Spontaneous
  Country: CN (occurrence: CN)
  Receive Date: 20160314
  Receipt Date: 20160314
  Transmission Date: 20160526
  Serious: Yes (Other)
  Sender: FDA-Public Use
  Company Number: CN-PFIZER INC-2016140787

PATIENT
  Age: 25 Year
  Sex: Male

DRUGS (7)
  1. TACROLIMUS. [Concomitant]
     Active Substance: TACROLIMUS
     Dosage: 1 MG IN THE DAY TIME AND 0.5 MG AT NIGHT
     Dates: start: 20160207, end: 20160219
  2. VFEND [Suspect]
     Active Substance: VORICONAZOLE
     Indication: ASPERGILLUS INFECTION
     Dosage: 200 MG, 2X/DAY
     Route: 048
     Dates: start: 20160213, end: 20160215
  3. MYCOPHENOLATE [Concomitant]
     Active Substance: MYCOPHENOLIC ACID
     Dosage: 750 MG, ALTERNATE DAY
     Dates: start: 20160127
  4. TACROLIMUS. [Concomitant]
     Active Substance: TACROLIMUS
     Dosage: 1 MG, 2X/DAY
     Dates: start: 20160129, end: 20160213
  5. SULPERAZON [Concomitant]
     Active Substance: CEFOPERAZONE SODIUM\SULBACTAM SODIUM
     Dosage: 3 G, 2X/DAY (EVERY 12 H)
     Dates: start: 20160213, end: 20160215
  6. SULPERAZON [Concomitant]
     Active Substance: CEFOPERAZONE SODIUM\SULBACTAM SODIUM
     Dosage: 3 G, 3X/DAY (EVERY 8 H)
     Dates: start: 20160130, end: 20160213
  7. ESOMEPRAZOLE [Concomitant]
     Active Substance: ESOMEPRAZOLE
     Dosage: 40 MG, 1X/DAY
     Dates: start: 20160205, end: 20160217

REACTIONS (5)
  - Altered state of consciousness [Recovering/Resolving]
  - Memory impairment [Recovering/Resolving]
  - Tic [Recovering/Resolving]
  - Mental disorder [Unknown]
  - Hallucination, visual [Recovering/Resolving]

NARRATIVE: CASE EVENT DATE: 20160215
